FAERS Safety Report 8820837 (Version 1)
Quarter: 2012Q4

REPORT INFORMATION
  Report Type: 
  Country: US (occurrence: US)
  Receive Date: 20121002
  Receipt Date: 20121002
  Transmission Date: 20130627
  Serious: Yes (Hospitalization)
  Sender: FDA-Public Use
  Company Number: US-ELI_LILLY_AND_COMPANY-US201209006665

PATIENT
  Age: 72 Year
  Sex: Male

DRUGS (6)
  1. HUMULIN NPH [Suspect]
     Indication: TYPE 2 DIABETES MELLITUS
     Dosage: 42 u, each morning
     Dates: start: 1982
  2. HUMALOG LISPRO [Suspect]
     Indication: TYPE 2 DIABETES MELLITUS
     Dosage: 10 u, each morning
  3. HUMALOG LISPRO [Suspect]
     Dosage: 40 u, each evening
  4. HUMALOG LISPRO [Suspect]
     Dosage: 12 u, each evening
  5. HUMALOG LISPRO [Suspect]
     Dosage: 30 u, each evening
  6. HUMALOG LISPRO [Suspect]
     Indication: TYPE 2 DIABETES MELLITUS
     Dosage: UNK
     Dates: end: 2011

REACTIONS (5)
  - Hospitalisation [Unknown]
  - Toe amputation [Recovered/Resolved]
  - Blister [Recovered/Resolved]
  - Staphylococcal skin infection [Recovered/Resolved]
  - Blood glucose increased [Recovered/Resolved]
